FAERS Safety Report 7518537-5 (Version None)
Quarter: 2011Q2

REPORT INFORMATION
  Report Type: 
  Country: None (occurrence: None)
  Receive Date: 20110601
  Receipt Date: 20110601
  Transmission Date: 20111010
  Serious: Yes (Other)
  Sender: FDA-Public Use
  Company Number: None

PATIENT
  Age: 21 Year
  Sex: Female
  Weight: 81.6475 kg

DRUGS (1)
  1. ACETAZOLAMIDE 250MG TAB [Suspect]
     Indication: BENIGN INTRACRANIAL HYPERTENSION
     Dosage: 250 MG TWICE DAILY PO
     Route: 048
     Dates: start: 20110101, end: 20110129

REACTIONS (3)
  - CHOLELITHIASIS [None]
  - GASTRIC ULCER [None]
  - PANCREATITIS [None]
